APPROVED DRUG PRODUCT: FAMOTIDINE
Active Ingredient: FAMOTIDINE
Strength: 10MG
Dosage Form/Route: TABLET;ORAL
Application: A075400 | Product #001
Applicant: L PERRIGO CO
Approved: Mar 18, 2005 | RLD: No | RS: No | Type: OTC